FAERS Safety Report 10672379 (Version 1)
Quarter: 2014Q4

REPORT INFORMATION
  Report Type: Spontaneous
  Country: US (occurrence: None)
  Receive Date: 20141222
  Receipt Date: 20141222
  Transmission Date: 20150529
  Serious: Yes (Other)
  Sender: FDA-Public Use
  Company Number: None

PATIENT
  Age: 23 Year
  Sex: Female
  Weight: 54.43 kg

DRUGS (1)
  1. SUBOXONE [Suspect]
     Active Substance: BUPRENORPHINE HYDROCHLORIDE\NALOXONE HYDROCHLORIDE
     Indication: DEPENDENCE
     Dosage: SUBOXONE TWICE DAILY TAKEN UNDER THE TONGUE
     Route: 060

REACTIONS (4)
  - Tongue movement disturbance [None]
  - Tardive dyskinesia [None]
  - Dyskinesia [None]
  - Glossodynia [None]

NARRATIVE: CASE EVENT DATE: 20141218
